FAERS Safety Report 9392083 (Version 2)
Quarter: 2013Q3

REPORT INFORMATION
  Report Type: Spontaneous
  Country: US (occurrence: US)
  Receive Date: 20130709
  Receipt Date: 20130722
  Transmission Date: 20140515
  Serious: No
  Sender: FDA-Public Use
  Company Number: US-009507513-1306USA012165

PATIENT
  Age: 51 Year
  Sex: Male
  Weight: 87.98 kg

DRUGS (3)
  1. VICTRELIS [Suspect]
     Indication: HEPATITIS C
     Dosage: 800 MG, TID
     Route: 048
     Dates: start: 20130427, end: 20130624
  2. REBETOL [Suspect]
     Indication: HEPATITIS C
     Dosage: UNK
     Route: 048
     Dates: start: 20130330, end: 20130701
  3. PEGASYS [Suspect]
     Indication: HEPATITIS C
     Dosage: PROCLICK, QW
     Route: 058
     Dates: start: 20130330, end: 20130701

REACTIONS (6)
  - Local swelling [Unknown]
  - Erythema [Unknown]
  - Rash erythematous [Unknown]
  - Rash [Recovering/Resolving]
  - Pruritus [Unknown]
  - Palmar erythema [Unknown]
